FAERS Safety Report 6762464-8 (Version None)
Quarter: 2010Q2

REPORT INFORMATION
  Report Type: 
  Country: None (occurrence: None)
  Receive Date: 20100609
  Receipt Date: 20100528
  Transmission Date: 20101027
  Serious: Yes (Disabling)
  Sender: FDA-Public Use
  Company Number: PT-TEVA-236392ISR

PATIENT
  Sex: Male
  Weight: 80 kg

DRUGS (3)
  1. BICALUTAMIDE [Suspect]
     Indication: PROSTATE CANCER
     Route: 048
     Dates: start: 20100301, end: 20100309
  2. AMIODARONE HYDROCHLORIDE [Concomitant]
     Route: 048
     Dates: start: 19990101
  3. BICALUTAMIDE [Concomitant]
     Route: 048
     Dates: start: 20060101, end: 20100228

REACTIONS (1)
  - TOXIC SKIN ERUPTION [None]
